FAERS Safety Report 19716775 (Version 1)
Quarter: 2021Q3

REPORT INFORMATION
  Report Type: Spontaneous
  Country: AR (occurrence: AR)
  Receive Date: 20210818
  Receipt Date: 20210818
  Transmission Date: 20211014
  Serious: Yes (Hospitalization)
  Sender: FDA-Public Use
  Company Number: AR-PFIZER INC-2021214247

PATIENT
  Age: 57 Year
  Sex: Male

DRUGS (1)
  1. SUTENT [Suspect]
     Active Substance: SUNITINIB MALATE
     Indication: GASTROINTESTINAL STROMAL TUMOUR
     Dosage: 50 MG, CYCLIC (DAILY, SCHEME 4/2 REST)
     Dates: start: 20200701

REACTIONS (8)
  - Vomiting [Recovered/Resolved]
  - Retching [Recovered/Resolved]
  - Discomfort [Unknown]
  - Oncologic complication [Unknown]
  - Neoplasm progression [Unknown]
  - Illness [Recovered/Resolved]
  - Gastrointestinal inflammation [Recovered/Resolved]
  - Pain [Unknown]

NARRATIVE: CASE EVENT DATE: 202106
